FAERS Safety Report 21669697 (Version 2)
Quarter: 2023Q2

REPORT INFORMATION
  Report Type: Spontaneous
  Country: CH (occurrence: CH)
  Receive Date: 20221201
  Receipt Date: 20230522
  Transmission Date: 20230721
  Serious: Yes (Other)
  Sender: FDA-Public Use
  Company Number: CH-BAYER-2022A163354

PATIENT
  Age: 39 Year
  Sex: Female

DRUGS (2)
  1. MIRENA [Suspect]
     Active Substance: LEVONORGESTREL
     Indication: Iron deficiency
     Dosage: 20?G/DAY
     Route: 015
     Dates: start: 20221109, end: 20221112
  2. IBUPROFEN [Concomitant]
     Active Substance: IBUPROFEN
     Dosage: 409 MG, PRN
     Route: 048

REACTIONS (3)
  - Hyperventilation [Recovered/Resolved]
  - Dizziness [Recovered/Resolved]
  - Off label use of device [Recovered/Resolved]

NARRATIVE: CASE EVENT DATE: 20221109
